FAERS Safety Report 12262497 (Version 3)
Quarter: 2020Q3

REPORT INFORMATION
  Report Type: Report from Study
  Country: KR (occurrence: KR)
  Receive Date: 20160413
  Receipt Date: 20160823
  Transmission Date: 20201105
  Serious: Yes (Hospitalization)
  Sender: FDA-Public Use
  Company Number: KR-ROCHE-1663346

PATIENT
  Age: 74 Year
  Sex: Male
  Weight: 56.3 kg

DRUGS (7)
  1. TRANEXAMIC ACID. [Concomitant]
     Active Substance: TRANEXAMIC ACID
     Indication: HAEMOPTYSIS
     Route: 065
     Dates: start: 20150609
  2. CODEINE [Concomitant]
     Active Substance: CODEINE
     Indication: COUGH
     Route: 065
     Dates: start: 20150105
  3. MUCOPECT [Concomitant]
     Indication: COUGH
     Route: 065
     Dates: start: 20150104
  4. BISACODYL. [Concomitant]
     Active Substance: BISACODYL
     Indication: CONSTIPATION
     Route: 065
     Dates: start: 20150317, end: 20160125
  5. ALECTINIB. [Suspect]
     Active Substance: ALECTINIB
     Indication: NON-SMALL CELL LUNG CANCER
     Dosage: MOST RECENT DOSE PRIOR TO THE EVENT: 450 MG ON 17/NOV/2015, 18/JAN/2016, 04/APR/2016.
     Route: 048
     Dates: start: 20150217
  6. THEOBROMINE [Concomitant]
     Active Substance: THEOBROMINE
     Indication: COUGH
     Route: 065
     Dates: start: 20150609
  7. LACTULOSE. [Concomitant]
     Active Substance: LACTULOSE
     Indication: CONSTIPATION
     Route: 065
     Dates: start: 20150317

REACTIONS (4)
  - Urinary tract infection [Recovered/Resolved]
  - Pneumonia [Recovered/Resolved]
  - Pneumonitis [Recovered/Resolved]
  - Bronchitis [Recovered/Resolved]

NARRATIVE: CASE EVENT DATE: 20151117
